FAERS Safety Report 10062813 (Version 2)
Quarter: 2014Q2

REPORT INFORMATION
  Report Type: Spontaneous
  Country: US (occurrence: US)
  Receive Date: 20140407
  Receipt Date: 20140430
  Transmission Date: 20141212
  Serious: No
  Sender: FDA-Public Use
  Company Number: US-PFIZER INC-2014093932

PATIENT
  Sex: Female

DRUGS (1)
  1. PREGABALIN [Suspect]
     Dosage: UNK

REACTIONS (4)
  - Pain in extremity [Unknown]
  - Hypertension [Unknown]
  - Osteoporosis [Unknown]
  - Emotional disorder [Unknown]
